FAERS Safety Report 17571389 (Version 1)
Quarter: 2020Q1

REPORT INFORMATION
  Report Type: Spontaneous
  Country: FR (occurrence: FR)
  Receive Date: 20200323
  Receipt Date: 20200323
  Transmission Date: 20200409
  Serious: Yes (Other)
  Sender: FDA-Public Use
  Company Number: FR-TEVA-2020-FR-1206633

PATIENT
  Age: 36 Year
  Sex: Female

DRUGS (3)
  1. NAPROXENE [Suspect]
     Active Substance: NAPROXEN
     Indication: INFECTION
     Dosage: UNKNOWN
     Route: 048
     Dates: start: 201603, end: 201603
  2. PERINDOPRIL [Concomitant]
     Active Substance: PERINDOPRIL
     Indication: HYPERTENSION
     Dosage: 2 DOSAGE FORMS
     Route: 048
  3. CERAZETTE [Concomitant]
     Indication: CONTRACEPTION
     Dosage: 1 DOSAGE FORMS
     Route: 048

REACTIONS (1)
  - Behcet^s syndrome [Recovered/Resolved]

NARRATIVE: CASE EVENT DATE: 201603
